FAERS Safety Report 5888847-6 (Version None)
Quarter: 2008Q3

REPORT INFORMATION
  Report Type: 
  Country: None (occurrence: None)
  Receive Date: 20080919
  Receipt Date: 20080910
  Transmission Date: 20090109
  Serious: Yes (Other)
  Sender: FDA-Public Use
  Company Number: PHEH2008US06726

PATIENT
  Sex: Female

DRUGS (2)
  1. TOBI [Suspect]
     Indication: BRONCHIECTASIS
     Dosage: 300 MG, QD
     Dates: start: 20080422
  2. TOBI [Suspect]
     Dosage: UNK

REACTIONS (7)
  - APHONIA [None]
  - DRUG ADMINISTRATION ERROR [None]
  - LARYNGITIS [None]
  - PRODUCTIVE COUGH [None]
  - PULMONARY OEDEMA [None]
  - UPPER RESPIRATORY TRACT INFLAMMATION [None]
  - WHEEZING [None]
